FAERS Safety Report 25993831 (Version 1)
Quarter: 2025Q4

REPORT INFORMATION
  Report Type: Other
  Country: IN (occurrence: IN)
  Receive Date: 20251104
  Receipt Date: 20251104
  Transmission Date: 20260117
  Serious: Yes (Other)
  Sender: ALVOGEN
  Company Number: IN-ALVOGEN-2025098956

PATIENT
  Sex: Female

DRUGS (1)
  1. LEVOTHYROXINE [Suspect]
     Active Substance: LEVOTHYROXINE
     Indication: Hypothyroidism
     Dosage: 125 MCG
     Route: 048
     Dates: start: 2014, end: 2016

REACTIONS (9)
  - Suicidal ideation [Unknown]
  - Drug intolerance [Unknown]
  - Depressed mood [Recovering/Resolving]
  - Dysarthria [Recovering/Resolving]
  - Discomfort [Recovering/Resolving]
  - Weight increased [Recovering/Resolving]
  - Fatigue [Recovering/Resolving]
  - Affect lability [Recovering/Resolving]
  - Insomnia [Recovering/Resolving]
